FAERS Safety Report 18233024 (Version 2)
Quarter: 2020Q3

REPORT INFORMATION
  Report Type: Spontaneous
  Country: UG (occurrence: UG)
  Receive Date: 20200904
  Receipt Date: 20200922
  Transmission Date: 20201103
  Serious: Yes (Other)
  Sender: FDA-Public Use
  Company Number: UG-LANNETT COMPANY, INC.-UG-2020LAN000211

PATIENT
  Age: 26 Year
  Sex: Female

DRUGS (3)
  1. DOLUTEGRAVIR [Suspect]
     Active Substance: DOLUTEGRAVIR
     Indication: HIV INFECTION
     Dosage: 50 MG/DAY, QD, 1 COURSE, BEGAN PRIOR TO CONCEPTION
     Route: 048
     Dates: start: 20180320
  2. LAMIVUDINE. [Suspect]
     Active Substance: LAMIVUDINE
     Indication: HIV INFECTION
     Dosage: 300 MG, QD, 1 COURSE, BEGAN PRIOR TO CONCEPTION
     Route: 048
     Dates: start: 20180320
  3. TENOFOVIR DISOPROXIL MALEATE [Suspect]
     Active Substance: TENOFOVIR DISOPROXIL MALEATE
     Indication: HIV INFECTION
     Dosage: 300 MG/DAY, QD, 1 COURSE, BEGAN PRIOR TO CONCEPTION
     Route: 048
     Dates: start: 20180320

REACTIONS (3)
  - Stillbirth [Unknown]
  - Malaria [Unknown]
  - Exposure during pregnancy [Unknown]

NARRATIVE: CASE EVENT DATE: 20200220
